FAERS Safety Report 24297012 (Version 1)
Quarter: 2024Q3

REPORT INFORMATION
  Report Type: Report from Study
  Country: US (occurrence: US)
  Receive Date: 20240909
  Receipt Date: 20240909
  Transmission Date: 20241016
  Serious: Yes (Hospitalization, Other)
  Sender: ACCORD
  Company Number: US-Accord-444861

PATIENT
  Sex: Male

DRUGS (2)
  1. CLOZAPINE [Suspect]
     Active Substance: CLOZAPINE
     Indication: Product used for unknown indication
  2. CLOZAPINE [Suspect]
     Active Substance: CLOZAPINE
     Indication: Product used for unknown indication
     Dosage: BID

REACTIONS (5)
  - Product dose omission issue [Unknown]
  - Mental status changes [Unknown]
  - Sepsis [Unknown]
  - Metabolic encephalopathy [Unknown]
  - Meningitis [Unknown]
